FAERS Safety Report 4677220-4 (Version None)
Quarter: 2005Q2

REPORT INFORMATION
  Report Type: 
  Country: None (occurrence: None)
  Receive Date: 20050526
  Receipt Date: 20050517
  Transmission Date: 20051028
  Serious: Yes (Hospitalization)
  Sender: FDA-Public Use
  Company Number: 2005076365

PATIENT
  Age: 56 Year
  Sex: Female

DRUGS (10)
  1. ZITHROMAX [Suspect]
     Indication: UPPER RESPIRATORY TRACT INFLAMMATION
     Dosage: 500 MG, ORAL
     Route: 048
     Dates: start: 20050510, end: 20050511
  2. NORVASC [Concomitant]
  3. BRUFEN (IBUPROFEN) (IBUPROFEN) [Concomitant]
  4. SOLETON (ZALTOPROFEN) (ZALTOPROFEN) [Concomitant]
  5. SG (SULFAGUANIDINE) [Concomitant]
  6. FLOMOX (CEFCAPENE PIVOXIL HYDROCHLORIDE) (CEFCAPENE PIVOXIL HYDROCHLOR [Concomitant]
  7. LOXONIN (LOXOPROFEN SODIUM) (LOXOPROFEN SODIUM) [Concomitant]
  8. SP (DOQUALINIUM CHLORIDE) (ALL OTHER THERAPEUTIC PRODUCTS) [Concomitant]
  9. ISODINE (POVIDONE-IODINE) (POVIDONE-IODINE) [Concomitant]
  10. DEPAS (ETIZOLAM) (ETIZOLAM) [Concomitant]

REACTIONS (4)
  - COMA [None]
  - CONVULSION [None]
  - SNORING [None]
  - SOMNOLENCE [None]
